FAERS Safety Report 21019858 (Version 2)
Quarter: 2022Q3

REPORT INFORMATION
  Report Type: Spontaneous
  Country: US (occurrence: US)
  Receive Date: 20220628
  Receipt Date: 20220711
  Transmission Date: 20221026
  Serious: Yes (Other)
  Sender: FDA-Public Use
  Company Number: US-MLMSERVICE-20220620-3629492-1

PATIENT
  Age: 19 Year
  Sex: Male

DRUGS (2)
  1. GENTAMICIN SULFATE [Suspect]
     Active Substance: GENTAMICIN SULFATE
     Indication: Endocarditis
     Dosage: UNK
  2. CEFTRIAXONE [Concomitant]
     Active Substance: CEFTRIAXONE
     Indication: Bacterial infection
     Dosage: 2 G
     Route: 042

REACTIONS (1)
  - Renal impairment [Unknown]
